FAERS Safety Report 7446119-2 (Version None)
Quarter: 2011Q2

REPORT INFORMATION
  Report Type: 
  Country: None (occurrence: None)
  Receive Date: 20110429
  Receipt Date: 20110408
  Transmission Date: 20111010
  Serious: Yes (Other)
  Sender: FDA-Public Use
  Company Number: A0922092A

PATIENT
  Age: 43 Year
  Sex: Female

DRUGS (1)
  1. COMBIVIR [Suspect]
     Indication: ANTIVIRAL PROPHYLAXIS
     Route: 048
     Dates: start: 20100511, end: 20110401

REACTIONS (2)
  - HYPERGLYCAEMIA [None]
  - DIABETES MELLITUS [None]
